FAERS Safety Report 7791359-6 (Version None)
Quarter: 2011Q4

REPORT INFORMATION
  Report Type: 
  Country: None (occurrence: None)
  Receive Date: 20111003
  Receipt Date: 20050304
  Transmission Date: 20120403
  Serious: No
  Sender: FDA-Public Use
  Company Number: 2005BI005391

PATIENT
  Sex: Female
  Weight: 77 kg

DRUGS (2)
  1. TYSABRI [Suspect]
     Indication: MULTIPLE SCLEROSIS
     Route: 042
     Dates: start: 20050126, end: 20050223
  2. TYSABRI [Suspect]
     Route: 042
     Dates: start: 20081110

REACTIONS (2)
  - FATIGUE [None]
  - HEADACHE [None]
